FAERS Safety Report 19962965 (Version 1)
Quarter: 2021Q4

REPORT INFORMATION
  Report Type: Spontaneous
  Country: IT (occurrence: IT)
  Receive Date: 20211018
  Receipt Date: 20211018
  Transmission Date: 20220303
  Serious: Yes (Hospitalization)
  Sender: FDA-Public Use
  Company Number: IT-STRIDES ARCOLAB LIMITED-2021SP028580

PATIENT
  Sex: Female

DRUGS (5)
  1. ZOLPIDEM [Suspect]
     Active Substance: ZOLPIDEM TARTRATE
     Indication: Insomnia
     Dosage: 300 MILLIGRAM PER DAY, 30-40 MG EVERY 3 HOURS
     Route: 048
  2. ZOLPIDEM [Suspect]
     Active Substance: ZOLPIDEM TARTRATE
     Indication: Anxiety
     Dosage: 150 MILLIGRAM, PER DAY (DOSE REDUCED)
     Route: 048
  3. ZOLPIDEM [Suspect]
     Active Substance: ZOLPIDEM TARTRATE
     Indication: Stress
     Dosage: DOSE REDUCED TO 20-30 MG PER DAY
     Route: 048
  4. ZOLPIDEM [Suspect]
     Active Substance: ZOLPIDEM TARTRATE
     Dosage: UNK, ZOLPIDEM DOSE WAS REDUCED TO 1-2 PILL PER DAY WITH COMPLETE DISCONTINUATION
     Route: 048
  5. LEVOTHYROXINE SODIUM [Concomitant]
     Active Substance: LEVOTHYROXINE SODIUM
     Indication: Autoimmune thyroiditis
     Dosage: 100 MICROGRAM, PER DAY
     Route: 065

REACTIONS (12)
  - Chills [Recovered/Resolved]
  - Vertigo [Recovered/Resolved]
  - Confusional state [Recovered/Resolved]
  - Asthenia [Recovered/Resolved]
  - Intentional product misuse [Unknown]
  - Anxiety [Recovered/Resolved]
  - Rebound effect [Recovered/Resolved]
  - Hyperhidrosis [Recovered/Resolved]
  - Insomnia [Recovered/Resolved]
  - Nausea [Recovered/Resolved]
  - Withdrawal syndrome [Recovered/Resolved]
  - Off label use [Unknown]
